FAERS Safety Report 14381117 (Version 4)
Quarter: 2020Q1

REPORT INFORMATION
  Report Type: Spontaneous
  Country: PL (occurrence: PL)
  Receive Date: 20180112
  Receipt Date: 20200130
  Transmission Date: 20200409
  Serious: Yes (Other)
  Sender: FDA-Public Use
  Company Number: PHHY2017PL198844

PATIENT
  Sex: Female

DRUGS (14)
  1. DIAZEPAM. [Suspect]
     Active Substance: DIAZEPAM
     Indication: FOETAL EXPOSURE DURING PREGNANCY
     Dosage: UNK
     Route: 064
  2. NITRENDIPINE [Suspect]
     Active Substance: NITRENDIPINE
     Indication: FOETAL EXPOSURE DURING PREGNANCY
     Dosage: UNK
     Route: 064
  3. ENOXAPARIN [Suspect]
     Active Substance: ENOXAPARIN
     Indication: FOETAL EXPOSURE DURING PREGNANCY
     Dosage: UNK
     Route: 064
  4. METOPROLOL. [Suspect]
     Active Substance: METOPROLOL
     Indication: FOETAL EXPOSURE DURING PREGNANCY
     Dosage: UNK
     Route: 064
  5. BETAMETHASONE. [Suspect]
     Active Substance: BETAMETHASONE
     Indication: FOETAL EXPOSURE DURING PREGNANCY
     Dosage: UNK
     Route: 064
  6. OXYGEN. [Suspect]
     Active Substance: OXYGEN
     Indication: FOETAL EXPOSURE DURING PREGNANCY
     Dosage: UNK
     Route: 064
  7. FLUCONAZOLE. [Suspect]
     Active Substance: FLUCONAZOLE
     Indication: FOETAL EXPOSURE DURING PREGNANCY
     Dosage: DOSAGE FORM UNSPECIFIED
     Route: 064
  8. CIPROFLOXACIN. [Suspect]
     Active Substance: CIPROFLOXACIN
     Indication: FOETAL EXPOSURE DURING PREGNANCY
     Dosage: DOSAGE FORMS UNSPECIFIED
     Route: 064
  9. MAGNESIUM [Suspect]
     Active Substance: MAGNESIUM
     Indication: FOETAL EXPOSURE DURING PREGNANCY
     Dosage: UNK
     Route: 064
  10. CEFUROXIME. [Suspect]
     Active Substance: CEFUROXIME
     Indication: FOETAL EXPOSURE DURING PREGNANCY
     Dosage: UNK
     Route: 064
  11. PIPERACILLIN + TAZOBACTAM 4 G + 0.5 G POWDER FOR INJECTION [Suspect]
     Active Substance: PIPERACILLIN SODIUM\TAZOBACTAM SODIUM
     Indication: FOETAL EXPOSURE DURING PREGNANCY
     Dosage: DOSAGE FORM UNSPECIFIED
     Route: 064
  12. METHYLDOPA. [Suspect]
     Active Substance: METHYLDOPA
     Indication: FOETAL EXPOSURE DURING PREGNANCY
     Dosage: UNK
     Route: 064
  13. BUDESONIDE. [Suspect]
     Active Substance: BUDESONIDE
     Indication: FOETAL EXPOSURE DURING PREGNANCY
     Dosage: UNK
     Route: 064
  14. OSELTAMIVIR [Suspect]
     Active Substance: OSELTAMIVIR
     Indication: FOETAL EXPOSURE DURING PREGNANCY
     Route: 064

REACTIONS (2)
  - Premature baby [Unknown]
  - Foetal exposure during pregnancy [Unknown]
